FAERS Safety Report 6251987-6 (Version None)
Quarter: 2009Q2

REPORT INFORMATION
  Report Type: 
  Country: None (occurrence: None)
  Receive Date: 20090630
  Receipt Date: 20040815
  Transmission Date: 20091009
  Serious: Yes (Hospitalization)
  Sender: FDA-Public Use
  Company Number: US-ROCHE-638315

PATIENT
  Sex: Male

DRUGS (9)
  1. ENFUVIRTIDE [Suspect]
     Route: 065
     Dates: start: 20030714, end: 20061117
  2. ZIAGEN [Concomitant]
     Dosage: FREQUENCY: QD
     Dates: start: 20020809, end: 20040211
  3. VIREAD [Concomitant]
     Dosage: FREQUENCY: QD
     Dates: start: 20020903, end: 20040211
  4. COMBIVIR [Concomitant]
     Dates: start: 20040211, end: 20080617
  5. CRIXIVAN [Concomitant]
     Dates: start: 20040211, end: 20041026
  6. NORVIR [Concomitant]
     Dates: start: 20040211, end: 20080617
  7. KALETRA [Concomitant]
     Dates: end: 20040211
  8. ZERIT [Concomitant]
     Dates: end: 20040211
  9. DAPSONE [Concomitant]
     Dates: end: 20080617

REACTIONS (7)
  - GASTROINTESTINAL INFLAMMATION [None]
  - HAEMATURIA [None]
  - HYPOVOLAEMIA [None]
  - MASS [None]
  - NEPHROLITHIASIS [None]
  - RENAL CYST [None]
  - URINARY TRACT INFECTION [None]
